FAERS Safety Report 8042875-3 (Version None)
Quarter: 2012Q1

REPORT INFORMATION
  Report Type: 
  Country: None (occurrence: None)
  Receive Date: 20120112
  Receipt Date: 20120112
  Transmission Date: 20120608
  Serious: Yes (Other)
  Sender: FDA-Public Use
  Company Number: FR-JNJFOC-20120103332

PATIENT
  Age: 51 Year
  Sex: Female

DRUGS (2)
  1. TRAMADOL HCL [Suspect]
     Indication: PRODUCT USED FOR UNKNOWN INDICATION
     Route: 048
     Dates: start: 20111001, end: 20111103
  2. TRAMADOL HCL [Suspect]
     Route: 048
     Dates: start: 20111103, end: 20111117

REACTIONS (1)
  - BLINDNESS [None]
